FAERS Safety Report 16202132 (Version 2)
Quarter: 2019Q2

REPORT INFORMATION
  Report Type: Report from Study
  Country: NL (occurrence: NL)
  Receive Date: 20190416
  Receipt Date: 20190418
  Transmission Date: 20190711
  Serious: Yes (Hospitalization)
  Sender: FDA-Public Use
  Company Number: NL-B.I. PHARMACEUTICALS,INC./RIDGEFIELD-2019-BI-016351

PATIENT
  Age: 67 Year
  Sex: Female
  Weight: 50.3 kg

DRUGS (3)
  1. BIBF 1120 [Suspect]
     Active Substance: NINTEDANIB
     Indication: OVARIAN CLEAR CELL CARCINOMA
  2. BIBF 1120 [Suspect]
     Active Substance: NINTEDANIB
     Indication: CLEAR CELL ENDOMETRIAL CARCINOMA
     Route: 048
     Dates: start: 20190304, end: 20190401
  3. EDOXABAN [Concomitant]
     Active Substance: EDOXABAN TOSYLATE
     Indication: PULMONARY EMBOLISM
     Route: 048
     Dates: start: 201812

REACTIONS (1)
  - Endocarditis [Not Recovered/Not Resolved]

NARRATIVE: CASE EVENT DATE: 20190405
